FAERS Safety Report 9749895 (Version 3)
Quarter: 2014Q1

REPORT INFORMATION
  Report Type: Spontaneous
  Country: SE (occurrence: SE)
  Receive Date: 20131212
  Receipt Date: 20140209
  Transmission Date: 20141002
  Serious: Yes (Life-Threatening, Other)
  Sender: FDA-Public Use
  Company Number: SE-PFIZER INC-2013354760

PATIENT
  Age: 72 Year
  Sex: Female
  Weight: 61 kg

DRUGS (7)
  1. LOPID [Suspect]
     Indication: HYPERLIPIDAEMIA
     Dosage: 450 MG, 1X/DAY
     Dates: start: 20130917, end: 20130923
  2. LOPID [Suspect]
     Indication: LIVER FUNCTION TEST ABNORMAL
  3. WARAN [Concomitant]
     Dosage: 2.5 MG, UNK
     Dates: start: 2010
  4. LEVAXIN [Concomitant]
     Dosage: 100 UG, UNK
     Dates: start: 2011
  5. NORMORIX [Concomitant]
     Dosage: UNK
     Dates: start: 2010
  6. TRIOBE [Concomitant]
     Dosage: UNK
  7. CRESTOR [Concomitant]
     Dosage: UNK
     Dates: start: 2011

REACTIONS (4)
  - Suicidal ideation [Recovered/Resolved]
  - Depression [Recovered/Resolved]
  - Alopecia [Recovered/Resolved]
  - Hypertriglyceridaemia [Recovered/Resolved]
